FAERS Safety Report 4275158-8 (Version None)
Quarter: 2004Q1

REPORT INFORMATION
  Report Type: 
  Country: None (occurrence: None)
  Receive Date: 20040116
  Receipt Date: 20040108
  Transmission Date: 20041129
  Serious: Yes (Death, Other)
  Sender: FDA-Public Use
  Company Number: 2004-01-0220

PATIENT
  Age: 82 Year
  Sex: Male

DRUGS (2)
  1. FLUTAMIDE [Suspect]
     Indication: PROSTATE CANCER STAGE III
     Dosage: 375 MG QD ORAL
     Route: 048
  2. ESTRAMUSTINE PHOSPHATE SODIUM [Suspect]
     Indication: PROSTATE CANCER

REACTIONS (3)
  - BREAST CANCER MALE [None]
  - PROSTATE CANCER [None]
  - PROSTATIC SPECIFIC ANTIGEN INCREASED [None]
